FAERS Safety Report 20040592 (Version 1)
Quarter: 2021Q4

REPORT INFORMATION
  Report Type: Spontaneous
  Country: US (occurrence: None)
  Receive Date: 20211107
  Receipt Date: 20211107
  Transmission Date: 20220303
  Serious: Yes (Hospitalization)
  Sender: FDA-Public Use
  Company Number: None

PATIENT
  Sex: Female

DRUGS (7)
  1. CYCLOPHOSPHAMIDE [Suspect]
     Active Substance: CYCLOPHOSPHAMIDE
     Indication: Amyloidosis
  2. DEXAMETHASONE [Suspect]
     Active Substance: DEXAMETHASONE
  3. ESTRADIOL [Concomitant]
     Active Substance: ESTRADIOL
  4. LYRICA [Concomitant]
     Active Substance: PREGABALIN
  5. VITAMINS [Concomitant]
     Active Substance: VITAMINS
  6. NORTRIPTYLINE [Concomitant]
     Active Substance: NORTRIPTYLINE
  7. MIDODRINE [Concomitant]
     Active Substance: MIDODRINE

REACTIONS (1)
  - Hospitalisation [None]
